FAERS Safety Report 4683610-6 (Version None)
Quarter: 2005Q2

REPORT INFORMATION
  Report Type: 
  Country: None (occurrence: None)
  Receive Date: 20050607
  Receipt Date: 20050531
  Transmission Date: 20051028
  Serious: Yes (Other)
  Sender: FDA-Public Use
  Company Number: PHEH2005US06272

PATIENT
  Age: 56 Year
  Sex: Female

DRUGS (3)
  1. LAMISIL [Suspect]
     Indication: NAIL TINEA
     Dosage: 250 MG, QD
     Route: 048
  2. ZOCOR [Concomitant]
  3. LISINOPRIL [Concomitant]

REACTIONS (2)
  - HEPATIC STEATOSIS [None]
  - UTERINE LEIOMYOMA [None]
